FAERS Safety Report 9465251 (Version 1)
Quarter: 2013Q3

REPORT INFORMATION
  Report Type: Spontaneous
  Country: US (occurrence: US)
  Receive Date: 20130819
  Receipt Date: 20130819
  Transmission Date: 20140515
  Serious: Yes (Other)
  Sender: FDA-Public Use
  Company Number: US-PFIZER INC-2013235562

PATIENT
  Sex: Male
  Weight: 2.12 kg

DRUGS (4)
  1. CARBOPLATIN [Suspect]
     Indication: SEROUS CYSTADENOCARCINOMA OVARY
     Dosage: (AREA UNDER THE CURVE56) GIVEN DAY 1
     Route: 064
  2. CARBOPLATIN [Suspect]
     Indication: CHEMOTHERAPY
  3. PACLITAXEL [Suspect]
     Indication: SEROUS CYSTADENOCARCINOMA OVARY
     Dosage: (60 MG/M2) GIVEN DAYS 1, 8, AND 15 ON A 28-DAY CYCLE
     Route: 064
  4. PACLITAXEL [Suspect]
     Indication: CHEMOTHERAPY

REACTIONS (3)
  - Maternal exposure timing unspecified [Unknown]
  - Talipes [Unknown]
  - Low birth weight baby [Recovered/Resolved]
